FAERS Safety Report 16225099 (Version 10)
Quarter: 2021Q4

REPORT INFORMATION
  Report Type: Report from Study
  Country: JP (occurrence: JP)
  Receive Date: 20190422
  Receipt Date: 20211117
  Transmission Date: 20220303
  Serious: Yes (Death, Other)
  Sender: FDA-Public Use
  Company Number: JP-JNJFOC-20190433079

PATIENT

DRUGS (1)
  1. SIMPONI [Suspect]
     Active Substance: GOLIMUMAB
     Indication: Rheumatoid arthritis
     Route: 058

REACTIONS (13)
  - Death [Fatal]
  - Neoplasm malignant [Unknown]
  - Toxic skin eruption [Unknown]
  - Cardiac failure [Unknown]
  - Multiple sclerosis [Unknown]
  - Infection [Unknown]
  - Back pain [Unknown]
  - Psoriasis [Unknown]
  - Drug ineffective [Unknown]
  - Drug eruption [Unknown]
  - Paradoxical drug reaction [Unknown]
  - Eczema [Unknown]
  - Fracture [Unknown]
